FAERS Safety Report 8545817-7 (Version None)
Quarter: 2012Q3

REPORT INFORMATION
  Report Type: 
  Country: None (occurrence: None)
  Receive Date: 20120727
  Receipt Date: 20120718
  Transmission Date: 20120928
  Serious: Yes (Death, Life-Threatening)
  Sender: FDA-Public Use
  Company Number: IT-FRI-1000036934

PATIENT
  Sex: Male

DRUGS (4)
  1. ESCITALOPRAM [Suspect]
     Indication: SUICIDE ATTEMPT
     Route: 048
     Dates: start: 20120625, end: 20120625
  2. OLANZAPINE [Suspect]
     Indication: SUICIDE ATTEMPT
     Route: 048
     Dates: start: 20120625, end: 20120625
  3. LENDORMIN [Suspect]
     Indication: SUICIDE ATTEMPT
     Route: 048
     Dates: start: 20120625, end: 20120625
  4. MINIAS [Suspect]
     Indication: SUICIDE ATTEMPT
     Route: 048
     Dates: start: 20120625, end: 20120625

REACTIONS (2)
  - CARDIAC ARREST [None]
  - INTENTIONAL OVERDOSE [None]
